FAERS Safety Report 13752495 (Version 1)
Quarter: 2017Q3

REPORT INFORMATION
  Report Type: Spontaneous
  Country: SI (occurrence: SI)
  Receive Date: 20170713
  Receipt Date: 20170713
  Transmission Date: 20171127
  Serious: Yes (Disabling, Other)
  Sender: FDA-Public Use
  Company Number: SI-NAPPMUNDI-GBR-2017-0046575

PATIENT
  Age: 74 Year
  Sex: Male

DRUGS (11)
  1. ARCOXIA [Suspect]
     Active Substance: ETORICOXIB
     Indication: PROSTATE CANCER METASTATIC
     Dosage: 1 DF, AM [STRENGTH 90MG]
     Route: 048
  2. CARDIOPIRIN [Concomitant]
     Active Substance: ASPIRIN
     Dosage: 1 DF, DAILY
     Route: 048
  3. APROVEL [Concomitant]
     Active Substance: IRBESARTAN
     Dosage: 1 DF, AM
     Route: 048
  4. CALCIUM CARBONATE. [Concomitant]
     Active Substance: CALCIUM CARBONATE
     Dosage: 1 DF, TID
     Route: 048
  5. EUTHYROX [Concomitant]
     Active Substance: LEVOTHYROXINE SODIUM
     Dosage: 1 TABLET, DAILY
     Route: 048
  6. BLOXAN [Concomitant]
     Active Substance: METOPROLOL TARTRATE
     Dosage: 1 DF, DAILY
     Route: 048
  7. SEVREDOL [Suspect]
     Active Substance: MORPHINE
     Indication: PROSTATE CANCER METASTATIC
     Dosage: 1 DF, PRN [STRENGTH 10MG]
     Route: 048
  8. CONTROLOC [Concomitant]
     Active Substance: PANTOPRAZOLE SODIUM
     Dosage: 1 DF, AM
     Route: 048
  9. TARGINACT [Suspect]
     Active Substance: NALOXONE HYDROCHLORIDE\OXYCODONE HYDROCHLORIDE
     Indication: PROSTATE CANCER METASTATIC
     Dosage: 1 DF, BID [STRENGTH 20MG/10MG]
     Route: 048
  10. TERTENSIF [Concomitant]
     Active Substance: INDAPAMIDE
     Dosage: 1 DF, DAILY
     Route: 048
  11. MEDROL [Concomitant]
     Active Substance: METHYLPREDNISOLONE
     Dosage: 1 DF, DAILY
     Route: 048

REACTIONS (3)
  - Gait disturbance [Recovered/Resolved]
  - Nausea [Recovered/Resolved]
  - Vomiting [Recovered/Resolved]

NARRATIVE: CASE EVENT DATE: 20170525
